FAERS Safety Report 14283183 (Version 4)
Quarter: 2018Q1

REPORT INFORMATION
  Report Type: Spontaneous
  Country: US (occurrence: US)
  Receive Date: 20171213
  Receipt Date: 20180126
  Transmission Date: 20180508
  Serious: Yes (Hospitalization)
  Sender: FDA-Public Use
  Company Number: US-ACTELION-A-NJ2017-164184

PATIENT
  Age: 83 Year
  Sex: Male

DRUGS (2)
  1. VENTAVIS [Suspect]
     Active Substance: ILOPROST
     Indication: PULMONARY ARTERIAL HYPERTENSION
     Dosage: 2.5 MCG, UNK
     Route: 055
     Dates: start: 20171205, end: 20171222
  2. VENTAVIS [Suspect]
     Active Substance: ILOPROST
     Dosage: 5 MCG, 6-9 X/DAY
     Route: 055
     Dates: end: 20180103

REACTIONS (5)
  - Therapy non-responder [Unknown]
  - Cough [Unknown]
  - Bronchial irritation [Unknown]
  - Tremor [Unknown]
  - Pneumonia [Unknown]

NARRATIVE: CASE EVENT DATE: 20171206
